FAERS Safety Report 20812729 (Version 1)
Quarter: 2022Q2

REPORT INFORMATION
  Report Type: Report from Study
  Country: US (occurrence: None)
  Receive Date: 20220511
  Receipt Date: 20220511
  Transmission Date: 20220720
  Serious: Yes (Death, Hospitalization)
  Sender: FDA-Public Use
  Company Number: US-ROCHE-3093991

PATIENT
  Age: 76 Year
  Sex: Female

DRUGS (3)
  1. BEVACIZUMAB [Suspect]
     Active Substance: BEVACIZUMAB
     Indication: Fallopian tube cancer
     Dosage: LAST ADMINISTRATION DATE OF BEVACIZUMAB IS 05/MAY/2015
     Route: 042
     Dates: start: 20150210
  2. GEMCITABINE [Suspect]
     Active Substance: GEMCITABINE
     Indication: Fallopian tube cancer
     Route: 042
     Dates: start: 20150210
  3. CARBOPLATIN [Suspect]
     Active Substance: CARBOPLATIN
     Indication: Fallopian tube cancer
     Dosage: AUC4
     Route: 042
     Dates: start: 20150210

REACTIONS (2)
  - Ovarian cancer [Fatal]
  - Embolism [Unknown]

NARRATIVE: CASE EVENT DATE: 20150527
